FAERS Safety Report 8564797-1 (Version None)
Quarter: 2012Q3

REPORT INFORMATION
  Report Type: 
  Country: None (occurrence: None)
  Receive Date: 20120803
  Receipt Date: 20120730
  Transmission Date: 20120928
  Serious: Yes (Life-Threatening)
  Sender: FDA-Public Use
  Company Number: IT-SANOFI-AVENTIS-2011SA085111

PATIENT
  Age: 14 Year
  Sex: Male

DRUGS (8)
  1. ISONIAZID [Suspect]
     Route: 048
     Dates: start: 20111027, end: 20111124
  2. ALLOPURINOL [Concomitant]
     Route: 065
  3. RIFADIN [Suspect]
     Route: 048
     Dates: start: 20111027, end: 20111124
  4. PYRAZINAMIDE [Suspect]
     Route: 048
     Dates: start: 20111027, end: 20111124
  5. ETHAMBUTOL HYDROCHLORIDE [Suspect]
     Route: 048
     Dates: start: 20111027, end: 20111124
  6. AUGMENTIN '500' [Concomitant]
     Route: 065
  7. PREDNISONE TAB [Concomitant]
     Route: 065
  8. ACETAMINOPHEN [Concomitant]
     Route: 065

REACTIONS (1)
  - ACUTE HEPATIC FAILURE [None]
